FAERS Safety Report 16596612 (Version 1)
Quarter: 2019Q3

REPORT INFORMATION
  Report Type: Spontaneous
  Country: US (occurrence: US)
  Receive Date: 20190719
  Receipt Date: 20190719
  Transmission Date: 20191004
  Serious: No
  Sender: FDA-Public Use
  Company Number: US-ASTRAZENECA-2019SE94121

PATIENT
  Age: 66 Year
  Sex: Male

DRUGS (2)
  1. CRESTOR [Suspect]
     Active Substance: ROSUVASTATIN CALCIUM
     Dosage: UNKNOWN
     Route: 048
  2. METFORMIN [Concomitant]
     Active Substance: METFORMIN HYDROCHLORIDE

REACTIONS (10)
  - Blood glucose fluctuation [Unknown]
  - Flank pain [Unknown]
  - Overweight [Unknown]
  - Blood cholesterol increased [Unknown]
  - Drug hypersensitivity [Unknown]
  - Weight abnormal [Unknown]
  - Renal impairment [Unknown]
  - Neuropathy peripheral [Unknown]
  - Eye disorder [Unknown]
  - Diabetes mellitus [Unknown]
